FAERS Safety Report 4742568-1 (Version None)
Quarter: 2005Q3

REPORT INFORMATION
  Report Type: 
  Country: None (occurrence: None)
  Receive Date: 20050811
  Receipt Date: 20050802
  Transmission Date: 20060218
  Serious: Yes (Hospitalization)
  Sender: FDA-Public Use
  Company Number: FR-JNJFOC-20050705009

PATIENT
  Age: 51 Year
  Sex: Female
  Weight: 96 kg

DRUGS (19)
  1. REMICADE [Suspect]
     Route: 042
  2. REMICADE [Suspect]
     Route: 042
  3. REMICADE [Suspect]
     Route: 042
  4. REMICADE [Suspect]
     Route: 042
  5. REMICADE [Suspect]
     Route: 042
  6. REMICADE [Suspect]
     Indication: RHEUMATOID ARTHRITIS
     Route: 042
  7. METHOTREXATE [Concomitant]
     Indication: RHEUMATOID ARTHRITIS
     Route: 048
  8. SPECIAFOLDINE [Concomitant]
     Indication: RHEUMATOID ARTHRITIS
     Route: 048
  9. DIFFU K [Concomitant]
     Indication: RHEUMATOID ARTHRITIS
     Route: 048
  10. CORTANCYL [Concomitant]
     Indication: RHEUMATOID ARTHRITIS
     Route: 048
  11. DAFALGAN CODEINE [Concomitant]
     Route: 048
  12. DAFALGAN CODEINE [Concomitant]
     Indication: RHEUMATOID ARTHRITIS
     Route: 048
  13. OMEPRAZOLE [Concomitant]
     Route: 048
  14. HYTACAND [Concomitant]
     Route: 048
  15. HYTACAND [Concomitant]
     Route: 048
  16. LUTENYL [Concomitant]
     Indication: FIBROMA
     Route: 048
  17. IDEOS [Concomitant]
     Route: 048
  18. IDEOS [Concomitant]
     Route: 048
  19. ZANIDIP [Concomitant]
     Route: 048

REACTIONS (5)
  - DYSPHAGIA [None]
  - ERYTHEMA [None]
  - INFUSION RELATED REACTION [None]
  - PRURITUS [None]
  - URTICARIA [None]
